FAERS Safety Report 8941073 (Version 1)
Quarter: 2012Q4

REPORT INFORMATION
  Report Type: Report from Study
  Country: RU (occurrence: RU)
  Receive Date: 20121203
  Receipt Date: 20121203
  Transmission Date: 20130627
  Serious: Yes (Life-Threatening, Hospitalization)
  Sender: FDA-Public Use
  Company Number: RU-009507513-1211RUS012774

PATIENT
  Age: 52 Year
  Sex: Female
  Weight: 58.2 kg

DRUGS (8)
  1. BLINDED BOCEPREVIR [Suspect]
     Indication: CHRONIC HEPATITIS C
     Dosage: UNK
     Route: 048
     Dates: start: 20120614, end: 20121122
  2. BLINDED PEGINTERFERON ALFA-2B [Suspect]
     Indication: CHRONIC HEPATITIS C
     Dosage: UNK
     Route: 048
     Dates: start: 20120614, end: 20121122
  3. BLINDED PLACEBO [Suspect]
     Indication: CHRONIC HEPATITIS C
     Dosage: UNK
     Route: 048
     Dates: start: 20120614, end: 20121122
  4. BLINDED POST TRIAL THERAPY [Suspect]
     Indication: CHRONIC HEPATITIS C
     Dosage: UNK
     Route: 048
     Dates: start: 20120614, end: 20121122
  5. BLINDED PRE TRIAL THERAPY [Suspect]
     Indication: CHRONIC HEPATITIS C
     Dosage: UNK
     Route: 048
     Dates: start: 20120614, end: 20121122
  6. BLINDED RIBAVIRIN [Suspect]
     Indication: CHRONIC HEPATITIS C
     Dosage: UNK
     Route: 048
     Dates: start: 20120614, end: 20121122
  7. PEGINTRON [Suspect]
     Indication: CHRONIC HEPATITIS C
     Dosage: 96 Microgram, qw
     Route: 058
     Dates: start: 20120517, end: 20121122
  8. REBETOL [Suspect]
     Indication: CHRONIC HEPATITIS C
     Dosage: 800 mg, Once
     Route: 048
     Dates: start: 20120517, end: 20121122

REACTIONS (2)
  - Type 1 diabetes mellitus [Recovering/Resolving]
  - Diabetic ketoacidotic hyperglycaemic coma [Recovered/Resolved]
